FAERS Safety Report 19129154 (Version 4)
Quarter: 2025Q2

REPORT INFORMATION
  Report Type: Spontaneous
  Country: US (occurrence: US)
  Receive Date: 20210413
  Receipt Date: 20250510
  Transmission Date: 20250717
  Serious: Yes (Hospitalization, Other)
  Sender: SANOFI AVENTIS
  Company Number: US-SA-SAC20210412000114

PATIENT
  Age: 49 Year
  Sex: Female

DRUGS (2)
  1. DUPIXENT [Suspect]
     Active Substance: DUPILUMAB
     Indication: Asthma
     Dosage: 300 MG, QD
     Route: 058
     Dates: start: 202004
  2. DUPIXENT [Suspect]
     Active Substance: DUPILUMAB
     Indication: Asthma
     Dosage: 300 MG, QD
     Route: 058

REACTIONS (9)
  - Large intestine infection [Unknown]
  - Sleeve gastrectomy [Unknown]
  - Neuralgia [Unknown]
  - Hypoaesthesia [Unknown]
  - Burning sensation [Unknown]
  - Peripheral coldness [Unknown]
  - Weight decreased [Unknown]
  - Pain in extremity [Unknown]
  - Inappropriate schedule of product administration [Unknown]

NARRATIVE: CASE EVENT DATE: 20200401
